FAERS Safety Report 24266088 (Version 1)
Quarter: 2024Q3

REPORT INFORMATION
  Report Type: Spontaneous
  Country: US (occurrence: US)
  Receive Date: 20240830
  Receipt Date: 20240830
  Transmission Date: 20241016
  Serious: No
  Sender: CSL BEHRING
  Company Number: US-BEH-2024177666

PATIENT
  Sex: Male

DRUGS (1)
  1. HIZENTRA [Suspect]
     Active Substance: HUMAN IMMUNOGLOBULIN G
     Indication: Primary immunodeficiency syndrome
     Dosage: 8 G, EVERY TWO WEEKS
     Route: 058

REACTIONS (3)
  - Migraine [Recovered/Resolved]
  - Somnolence [Recovered/Resolved]
  - Vomiting [Recovered/Resolved]
